FAERS Safety Report 5205321-0 (Version None)
Quarter: 2007Q1

REPORT INFORMATION
  Report Type: 
  Country: None (occurrence: None)
  Receive Date: 20070108
  Receipt Date: 20061221
  Transmission Date: 20070707
  Serious: Yes (Hospitalization)
  Sender: FDA-Public Use
  Company Number: 8020985

PATIENT
  Sex: Female

DRUGS (11)
  1. KEPPRA [Suspect]
     Dosage: 1 G 2/D
     Dates: start: 20050401, end: 20050711
  2. ORFIRIL   /00228501/ [Concomitant]
  3. RISA [Concomitant]
  4. MONOMACK [Concomitant]
  5. NEXIUM [Concomitant]
  6. PK-MERZ   /00055903/ [Concomitant]
  7. BELOC ZOK [Concomitant]
  8. THIAMINE HCL [Concomitant]
  9. VITAMIN B6 [Concomitant]
  10. VITAMIN B-12 [Concomitant]
  11. ENAHEXAL      /000574902/ [Concomitant]

REACTIONS (6)
  - CONDITION AGGRAVATED [None]
  - CONFUSIONAL STATE [None]
  - CONVULSION [None]
  - FATIGUE [None]
  - LOSS OF CONSCIOUSNESS [None]
  - SPEECH DISORDER [None]
